FAERS Safety Report 7406852-5 (Version None)
Quarter: 2011Q2

REPORT INFORMATION
  Report Type: 
  Country: None (occurrence: None)
  Receive Date: 20110411
  Receipt Date: 20110405
  Transmission Date: 20111010
  Serious: Yes (Other)
  Sender: FDA-Public Use
  Company Number: AU-PFIZER INC-2011060819

PATIENT
  Age: 53 Year
  Sex: Female

DRUGS (17)
  1. SUMATRIPTAN SUCCINATE [Concomitant]
     Dosage: 50 MG, AS NEEDED
     Route: 048
  2. METHOTREXATE [Suspect]
     Indication: RHEUMATOID ARTHRITIS
     Dosage: 25 MG/ML (50 MG/2ML):  DOSE 1 ML (25MG) WEEKLY
     Route: 030
  3. ENDONE [Concomitant]
     Dosage: 5 MG, EVERY 6 HOURS, AS NEEDED
     Route: 048
  4. FERRO-GRADUMET [Concomitant]
     Dosage: 105 MG, 1X/DAY
     Route: 048
  5. FOLIC ACID [Concomitant]
     Dosage: 5 MG, 1X/DAY
     Route: 048
  6. CELEBREX [Concomitant]
     Indication: RHEUMATOID ARTHRITIS
     Dosage: 200-400 MG/DAY FOR MANY YEARS
  7. PANADEINE FORTE [Concomitant]
     Dosage: 1 TO 2 EVERY 4-6 HOURS WHEN NECESSARY
  8. SOMAC [Concomitant]
     Dosage: 40 MG, 1X/DAY
  9. PROGESTERONE [Concomitant]
     Dosage: DAY 12-26
  10. DIPROSONE [Concomitant]
     Dosage: 0.5MG/G APPLIED TO AFFECTED AREA ONCE OR TWICE DAILY
  11. MAXOLON [Concomitant]
     Dosage: 10 MG, 3X/DAY, BEFORE MEALS
     Route: 048
  12. TRAMAL [Concomitant]
     Dosage: 50 MG, 1-2 FOUR TIMES DAILY, AS NEEDED
     Route: 048
  13. ENBREL [Suspect]
     Indication: RHEUMATOID ARTHRITIS
     Dosage: 50 MG, WEEKLY
     Route: 058
  14. PREDNISOLONE [Suspect]
     Dosage: 6 MG, 1X/DAY
     Route: 048
  15. DIAZEPAM [Concomitant]
     Dosage: 5 MG, 1-2, AS NEEDED
     Route: 048
  16. LOMOTIL [Concomitant]
     Dosage: 2 TABLETS, 3-4 TIMES DAILY INIITALLY, REDUCED WHEN DIARRHOEA CONTROLLED
  17. MODURETIC 5-50 [Concomitant]
     Dosage: 1 TABLET, ONCE A DAY, WHEN NEEDED

REACTIONS (1)
  - HERPES ZOSTER [None]
